FAERS Safety Report 8265844-7 (Version None)
Quarter: 2012Q2

REPORT INFORMATION
  Report Type: 
  Country: None (occurrence: None)
  Receive Date: 20120406
  Receipt Date: 20120329
  Transmission Date: 20120825
  Serious: Yes (Other)
  Sender: FDA-Public Use
  Company Number: US-CELGENEUS-163-21880-12033501

PATIENT

DRUGS (3)
  1. DEXAMETHASONE [Concomitant]
     Route: 065
  2. REVLIMID [Suspect]
     Route: 048
  3. COUMADIN [Concomitant]
     Indication: PROPHYLAXIS
     Route: 065

REACTIONS (2)
  - HAEMORRHAGE [None]
  - SUBDURAL HAEMORRHAGE [None]
